FAERS Safety Report 16820270 (Version 1)
Quarter: 2019Q3

REPORT INFORMATION
  Report Type: Report from Study
  Country: None (occurrence: GR)
  Receive Date: 20190918
  Receipt Date: 20190918
  Transmission Date: 20191005
  Serious: Yes (Other)
  Sender: FDA-Public Use
  Company Number: GR-ABBVIE-19K-066-2922134-00

PATIENT
  Age: 77 Year
  Sex: Female
  Weight: 52 kg

DRUGS (4)
  1. STILNOX [Concomitant]
     Active Substance: ZOLPIDEM TARTRATE
     Indication: PRODUCT USED FOR UNKNOWN INDICATION
     Route: 048
  2. THYROX [Concomitant]
     Indication: HYPOTHYROIDISM
     Route: 048
  3. DUODOPA [Suspect]
     Active Substance: CARBIDOPA\LEVODOPA
     Indication: PARKINSON^S DISEASE
     Dosage: MORNING DOSE:4.0ML; CONTINUOUS RATE:1.8ML/H; EXTRA DOSE:1.5ML
     Route: 050
     Dates: start: 20170523
  4. XANAX [Concomitant]
     Active Substance: ALPRAZOLAM
     Indication: ANXIETY
     Route: 048

REACTIONS (3)
  - Fall [Recovered/Resolved]
  - Balance disorder [Unknown]
  - Spinal cord injury [Recovering/Resolving]

NARRATIVE: CASE EVENT DATE: 20190905
